FAERS Safety Report 5226513-0 (Version None)
Quarter: 2007Q1

REPORT INFORMATION
  Report Type: 
  Country: None (occurrence: None)
  Receive Date: 20061201
  Receipt Date: 20061019
  Transmission Date: 20070707
  Serious: No
  Sender: FDA-Public Use
  Company Number: US200610003763

PATIENT
  Sex: Female

DRUGS (11)
  1. CYMBALTA [Suspect]
     Indication: DEPRESSION
     Dosage: 60 MG ORAL
     Route: 048
     Dates: start: 20060101
  2. CYMBALTA [Suspect]
     Indication: DEPRESSION
     Dosage: 60 MG ORAL
     Route: 048
     Dates: start: 20060801
  3. CALCIUM (CALCIUM) [Concomitant]
  4. CLARITIN /USA/ (LORATADINE) [Concomitant]
  5. VITAMINS [Concomitant]
  6. SYNTHROID [Concomitant]
  7. HORMONES AND RELATED AGENTS [Concomitant]
  8. ACIDOPHILUS (LACTOBACILLUS ACIDOPHILUS) [Concomitant]
  9. GARLIC (GARLIC) [Concomitant]
  10. LYSINE (LYSINE) [Concomitant]
  11. OMEGA-3 (OMEGA-3 TRIGLYCERIDES) [Concomitant]

REACTIONS (3)
  - DYSGEUSIA [None]
  - FATIGUE [None]
  - GINGIVAL DISCOLOURATION [None]
